FAERS Safety Report 7205134-4 (Version None)
Quarter: 2010Q4

REPORT INFORMATION
  Report Type: 
  Country: None (occurrence: None)
  Receive Date: 20101231
  Receipt Date: 20101222
  Transmission Date: 20110411
  Serious: Yes (Hospitalization)
  Sender: FDA-Public Use
  Company Number: US-RANBAXY-2010US-40667

PATIENT
  Age: 58 Year
  Sex: Male

DRUGS (2)
  1. ENALAPRIL MALEATE [Suspect]
     Indication: PRODUCT USED FOR UNKNOWN INDICATION
     Dosage: 25 MG, UNK
     Route: 065
  2. ENALAPRIL MALEATE [Suspect]
     Dosage: 10 MG, UNK
     Route: 065

REACTIONS (2)
  - PNEUMOTHORAX [None]
  - SYNCOPE [None]
